FAERS Safety Report 17770461 (Version 1)
Quarter: 2020Q2

REPORT INFORMATION
  Report Type: Spontaneous
  Country: GB (occurrence: GB)
  Receive Date: 20200512
  Receipt Date: 20200512
  Transmission Date: 20200714
  Serious: Yes (Hospitalization, Other)
  Sender: FDA-Public Use
  Company Number: GB-MACLEODS PHARMACEUTICALS US LTD-MAC2020026414

PATIENT

DRUGS (4)
  1. LIDOCAINE. [Suspect]
     Active Substance: LIDOCAINE
     Indication: LOCAL ANAESTHESIA
     Dosage: 120 MILLIGRAM, 1 TOTAL, VOLUME ADMINISTERED 5 ML 4 PERCENT LIDOCAINE TOPICALLY IN 0.1 ML DOSES
     Route: 061
  2. CO-PHENYLCAINE [Suspect]
     Active Substance: LIDOCAINE\PHENYLEPHRINE
     Indication: LOCAL ANAESTHESIA
     Dosage: UNK, 1 TOTAL, VOLUME ADMINISTERED 2.5 ML; 12.5 MG LIDOCAINE
     Route: 045
  3. LIDOCAINE. [Suspect]
     Active Substance: LIDOCAINE
     Dosage: 200 MILLIGRAM, 4 PERCENT 1 TOTAL, 5 ML (VOLUME ADMINISTERED), NEBULISER
     Route: 055
  4. LIDOCAINE. [Suspect]
     Active Substance: LIDOCAINE
     Dosage: 40 MILLIGRAM, 10 PERCENT, 1 TOTAL, VOLUME ADMINISTERED 4 ? 1 ML
     Route: 065

REACTIONS (9)
  - Cough [Recovered/Resolved]
  - Toxicity to various agents [Recovered/Resolved]
  - Dysgeusia [Recovered/Resolved]
  - Tinnitus [Recovered/Resolved]
  - Agitation [Recovered/Resolved]
  - Dizziness [Recovered/Resolved]
  - Vomiting [Recovered/Resolved]
  - Sinus bradycardia [Recovered/Resolved]
  - Nausea [Recovered/Resolved]
